FAERS Safety Report 19201711 (Version 12)
Quarter: 2022Q4

REPORT INFORMATION
  Report Type: Report from Study
  Country: US (occurrence: US)
  Receive Date: 20210430
  Receipt Date: 20221015
  Transmission Date: 20230112
  Serious: Yes (Life-Threatening, Hospitalization, Other)
  Sender: FDA-Public Use
  Company Number: US-AUROBINDO-AUR-APL-2021-017261

PATIENT
  Age: 77 Year
  Sex: Male
  Weight: 79.7 kg

DRUGS (17)
  1. BELINOSTAT [Suspect]
     Active Substance: BELINOSTAT
     Indication: Acute myeloid leukaemia
     Dosage: 8160 MILLIGRAM
     Route: 065
     Dates: start: 20200916
  2. BELINOSTAT [Suspect]
     Active Substance: BELINOSTAT
     Dosage: 8160 MILLIGRAM
     Route: 065
     Dates: start: 20201006
  3. BELINOSTAT [Suspect]
     Active Substance: BELINOSTAT
     Dosage: 8160 MILLIGRAM
     Route: 065
     Dates: start: 20201027
  4. BELINOSTAT [Suspect]
     Active Substance: BELINOSTAT
     Dosage: 8160 MILLIGRAM
     Route: 065
     Dates: start: 20201116
  5. BELINOSTAT [Suspect]
     Active Substance: BELINOSTAT
     Dosage: 8160 MG (TOTAL DOSE)
     Route: 042
     Dates: start: 20201207, end: 20201214
  6. BELINOSTAT [Suspect]
     Active Substance: BELINOSTAT
     Dosage: 8160 MILLIGRAM
     Route: 065
     Dates: start: 20210111
  7. BELINOSTAT [Suspect]
     Active Substance: BELINOSTAT
     Dosage: 8163 MILLIGRAM
     Route: 065
     Dates: start: 20210204
  8. BELINOSTAT [Suspect]
     Active Substance: BELINOSTAT
     Dosage: 8160 MILLIGRAM
     Route: 065
     Dates: start: 20210301
  9. PEVONEDISTAT [Suspect]
     Active Substance: PEVONEDISTAT
     Indication: Acute myeloid leukaemia
     Dosage: 206.7 MILLIGRAM
     Route: 065
     Dates: start: 20201207
  10. PEVONEDISTAT [Suspect]
     Active Substance: PEVONEDISTAT
     Dosage: 225 MILLIGRAM
     Route: 065
  11. PEVONEDISTAT [Suspect]
     Active Substance: PEVONEDISTAT
     Dosage: 225 MG (TOTAL DOSE)
     Route: 042
     Dates: start: 20201207
  12. PEVONEDISTAT [Suspect]
     Active Substance: PEVONEDISTAT
     Dosage: 225 MILLIGRAM
     Route: 065
     Dates: start: 20201006
  13. PEVONEDISTAT [Suspect]
     Active Substance: PEVONEDISTAT
     Dosage: 225 MILLIGRAM
     Route: 065
     Dates: start: 20201116
  14. PEVONEDISTAT [Suspect]
     Active Substance: PEVONEDISTAT
     Dosage: 225 MILLIGRAM
     Route: 065
     Dates: start: 20210111
  15. PEVONEDISTAT [Suspect]
     Active Substance: PEVONEDISTAT
     Dosage: 225 MILLIGRAM
     Route: 065
     Dates: start: 20201127
  16. PEVONEDISTAT [Suspect]
     Active Substance: PEVONEDISTAT
     Dosage: 225 MILLIGRAM
     Route: 065
     Dates: start: 20201207
  17. PEVONEDISTAT [Suspect]
     Active Substance: PEVONEDISTAT
     Dosage: 225 MILLIGRAM
     Route: 065
     Dates: start: 20210204

REACTIONS (18)
  - Neutrophil count decreased [Unknown]
  - Embolism [Recovered/Resolved]
  - Anaemia [Unknown]
  - Platelet count decreased [Unknown]
  - White blood cell count decreased [Unknown]
  - Atrial fibrillation [Unknown]
  - Blood lactate dehydrogenase increased [Unknown]
  - Cardiac disorder [Unknown]
  - Chest pain [Unknown]
  - Constipation [Unknown]
  - Dyspnoea [Unknown]
  - Electrocardiogram QT interval [Unknown]
  - Injection site reaction [Unknown]
  - Localised oedema [Unknown]
  - Lymphocyte count decreased [Unknown]
  - Non-cardiac chest pain [Unknown]
  - Pain in extremity [Unknown]
  - Pain [Unknown]

NARRATIVE: CASE EVENT DATE: 20200916
